FAERS Safety Report 11687498 (Version 2)
Quarter: 2015Q4

REPORT INFORMATION
  Report Type: Spontaneous
  Country: CH (occurrence: CH)
  Receive Date: 20151030
  Receipt Date: 20151102
  Transmission Date: 20160304
  Serious: Yes (Other)
  Sender: FDA-Public Use
  Company Number: CH-ASTRAZENECA-2015SF02897

PATIENT
  Age: 0 Day
  Sex: Male
  Weight: 3.1 kg

DRUGS (7)
  1. CALCIUM D [Concomitant]
     Active Substance: CALCIUM\VITAMIN D
     Route: 064
  2. PREDNISON [Suspect]
     Active Substance: PREDNISONE
     Indication: MULTIPLE SCLEROSIS
     Route: 064
     Dates: start: 20150719
  3. NITROFURANTOIN. [Suspect]
     Active Substance: NITROFURANTOIN
     Indication: URINARY TRACT INFECTION
     Route: 064
     Dates: start: 20150719, end: 20150725
  4. NEXIUM [Suspect]
     Active Substance: ESOMEPRAZOLE MAGNESIUM
     Route: 064
     Dates: start: 2014
  5. CLEXANE [Suspect]
     Active Substance: ENOXAPARIN SODIUM
     Route: 064
     Dates: start: 2015
  6. SOLU-MEDROL [Suspect]
     Active Substance: METHYLPREDNISOLONE SODIUM SUCCINATE
     Indication: MULTIPLE SCLEROSIS
     Route: 064
     Dates: start: 20150721, end: 20150721
  7. SANALEPSI N [Suspect]
     Active Substance: DOXYLAMINE SUCCINATE
     Route: 064

REACTIONS (3)
  - Cardiac murmur [Unknown]
  - Conjunctivitis [Recovered/Resolved]
  - Premature baby [Recovered/Resolved]

NARRATIVE: CASE EVENT DATE: 20150812
